FAERS Safety Report 18933314 (Version 1)
Quarter: 2021Q1

REPORT INFORMATION
  Report Type: Report from Study
  Country: FR (occurrence: FR)
  Receive Date: 20210224
  Receipt Date: 20210224
  Transmission Date: 20210420
  Serious: Yes (Other)
  Sender: FDA-Public Use
  Company Number: FR-MYLANLABS-2021M1010235

PATIENT
  Age: 57 Year
  Sex: Female

DRUGS (1)
  1. HULIO [Suspect]
     Active Substance: ADALIMUMAB-FKJP
     Indication: ANKYLOSING SPONDYLITIS
     Dosage: 40 MILLIGRAM
     Dates: end: 20210201

REACTIONS (2)
  - Drug ineffective [Unknown]
  - Pain [Unknown]
